FAERS Safety Report 17180186 (Version 2)
Quarter: 2020Q1

REPORT INFORMATION
  Report Type: Spontaneous
  Country: JP (occurrence: JP)
  Receive Date: 20191219
  Receipt Date: 20200116
  Transmission Date: 20200409
  Serious: Yes (Hospitalization)
  Sender: FDA-Public Use
  Company Number: JP-PFIZER INC-2019473161

PATIENT
  Age: 34 Year
  Sex: Female

DRUGS (8)
  1. TRIAZOLAM. [Concomitant]
     Active Substance: TRIAZOLAM
     Dosage: 0.125 MG, 1X/DAY
     Route: 048
     Dates: start: 20190903, end: 20190919
  2. CLOTIAZEPAM [Concomitant]
     Active Substance: CLOTIAZEPAM
     Dosage: 5 MG, AS NEEDED
     Route: 048
     Dates: start: 20191001, end: 20191020
  3. QUETIAPINE. [Concomitant]
     Active Substance: QUETIAPINE
     Dosage: 25 MG, 1X/DAY
     Route: 048
     Dates: start: 20191021
  4. LEXAPRO [Concomitant]
     Active Substance: ESCITALOPRAM OXALATE
     Dosage: 10 MG, 1X/DAY
     Route: 048
     Dates: start: 20190903, end: 20190919
  5. RISPERIDONE. [Concomitant]
     Active Substance: RISPERIDONE
     Dosage: 0.5 ML, AS NEEDED
     Route: 048
     Dates: start: 20190903, end: 20191001
  6. LYRICA [Suspect]
     Active Substance: PREGABALIN
     Indication: POST HERPETIC NEURALGIA
     Dosage: 75 MG, UNK
     Route: 048
     Dates: end: 2019
  7. EFFEXOR XR [Concomitant]
     Active Substance: VENLAFAXINE HYDROCHLORIDE
     Dosage: 37.5 MG, 1X/DAY
     Route: 048
     Dates: start: 20191010, end: 20191020
  8. BIPERIDEN [Concomitant]
     Active Substance: BIPERIDEN
     Dosage: 1 DF, 1X/DAY
     Route: 048
     Dates: start: 20191001, end: 20191009

REACTIONS (6)
  - Anxiety [Unknown]
  - Gait disturbance [Unknown]
  - Insomnia [Unknown]
  - Physical deconditioning [Unknown]
  - Dizziness [Unknown]
  - Musculoskeletal stiffness [Unknown]

NARRATIVE: CASE EVENT DATE: 2019
